FAERS Safety Report 25069221 (Version 4)
Quarter: 2025Q3

REPORT INFORMATION
  Report Type: Spontaneous
  Country: JP (occurrence: JP)
  Receive Date: 20250312
  Receipt Date: 20250703
  Transmission Date: 20251020
  Serious: Yes (Hospitalization, Other)
  Sender: BRISTOL-MYERS SQUIBB COMPANY
  Company Number: JP-ONO-2025JP003914

PATIENT
  Age: 68 Year
  Sex: Female
  Weight: 47.5 kg

DRUGS (7)
  1. OPDIVO [Suspect]
     Active Substance: NIVOLUMAB
     Indication: Oesophageal carcinoma
     Route: 041
     Dates: start: 20250115, end: 20250115
  2. FLUOROURACIL [Concomitant]
     Active Substance: FLUOROURACIL
     Indication: Oesophageal carcinoma
     Dates: start: 20241018, end: 20250119
  3. FLUOROURACIL [Concomitant]
     Active Substance: FLUOROURACIL
     Dates: start: 20250218, end: 20250325
  4. CISPLATIN [Concomitant]
     Active Substance: CISPLATIN
     Indication: Oesophageal carcinoma
     Dates: start: 20241018, end: 20250119
  5. CISPLATIN [Concomitant]
     Active Substance: CISPLATIN
     Dates: start: 20250218, end: 20250325
  6. VEMLIDY [Concomitant]
     Active Substance: TENOFOVIR ALAFENAMIDE FUMARATE
     Indication: Viral hepatitis carrier
     Route: 048
     Dates: start: 20241021
  7. LEVETIRACETAM [Concomitant]
     Active Substance: LEVETIRACETAM
     Indication: Product used for unknown indication
     Route: 048
     Dates: start: 20241004

REACTIONS (2)
  - Stevens-Johnson syndrome [Recovered/Resolved]
  - Eczema [Recovered/Resolved]

NARRATIVE: CASE EVENT DATE: 20250128
